FAERS Safety Report 5454442-6 (Version None)
Quarter: 2007Q3

REPORT INFORMATION
  Report Type: 
  Country: None (occurrence: None)
  Receive Date: 20070917
  Receipt Date: 20060907
  Transmission Date: 20080115
  Serious: No
  Sender: FDA-Public Use
  Company Number: US-ASTRAZENECA-2006UW17663

PATIENT
  Sex: Female

DRUGS (2)
  1. SEROQUEL [Suspect]
     Route: 048
  2. OXYCONTIN [Concomitant]
     Indication: RHEUMATOID ARTHRITIS

REACTIONS (1)
  - IMMUNE SYSTEM DISORDER [None]
